FAERS Safety Report 4302024-1 (Version None)
Quarter: 2004Q1

REPORT INFORMATION
  Report Type: 
  Country: None (occurrence: None)
  Receive Date: 20040220
  Receipt Date: 20040113
  Transmission Date: 20041129
  Serious: Yes (Death)
  Sender: FDA-Public Use
  Company Number: JP_031202380

PATIENT
  Age: 43 Year
  Sex: Male

DRUGS (7)
  1. ZYPREXA [Suspect]
     Indication: SCHIZOPHRENIA
     Dosage: 25 MG DAY
     Dates: start: 20031125, end: 20031209
  2. RISPERDAL [Concomitant]
  3. SERENACE (HALOPERIDOL) [Concomitant]
  4. CHLORPROMAZINE HCL [Concomitant]
  5. AKINETON [Concomitant]
  6. ROHYPNOL (FLUNITRAZEPAM) [Concomitant]
  7. VEGETAMIN B [Concomitant]

REACTIONS (22)
  - ANURIA [None]
  - BLOOD CREATINE PHOSPHOKINASE INCREASED [None]
  - BLOOD CREATININE INCREASED [None]
  - BLOOD GASES ABNORMAL [None]
  - BLOOD PRESSURE DECREASED [None]
  - BLOOD UREA INCREASED [None]
  - BODY TEMPERATURE INCREASED [None]
  - CARDIO-RESPIRATORY ARREST [None]
  - DEHYDRATION [None]
  - DEPRESSED LEVEL OF CONSCIOUSNESS [None]
  - DIABETIC KETOACIDOSIS [None]
  - FALL [None]
  - FEELING ABNORMAL [None]
  - HAEMODIALYSIS [None]
  - HYPERHIDROSIS [None]
  - HYPOXIA [None]
  - METABOLIC ACIDOSIS [None]
  - NEUROLEPTIC MALIGNANT SYNDROME [None]
  - PLATELET COUNT DECREASED [None]
  - PYREXIA [None]
  - TACHYCARDIA [None]
  - WHITE BLOOD CELL COUNT INCREASED [None]
